FAERS Safety Report 20375958 (Version 1)
Quarter: 2022Q1

REPORT INFORMATION
  Report Type: Spontaneous
  Country: FR (occurrence: FR)
  Receive Date: 20220125
  Receipt Date: 20220125
  Transmission Date: 20220423
  Serious: Yes (Hospitalization, Other)
  Sender: FDA-Public Use
  Company Number: None

PATIENT
  Age: 75 Year
  Sex: Male
  Weight: 48 kg

DRUGS (13)
  1. AMOXICILLIN\CLAVULANATE POTASSIUM [Suspect]
     Active Substance: AMOXICILLIN\CLAVULANATE POTASSIUM
     Indication: Infection
     Dosage: 3G QD
     Route: 048
     Dates: start: 20210806, end: 20210827
  2. IRBESARTAN [Suspect]
     Active Substance: IRBESARTAN
     Indication: Hypertension
     Dosage: 300MG QD
     Route: 048
     Dates: end: 20210812
  3. NAPROXEN SODIUM [Suspect]
     Active Substance: NAPROXEN SODIUM
     Dosage: 2 BOTTLES OF FORTIMEL 200 ML (HP/HC) 300 KCAL/20G PROTEIN/0G FIBRE
     Route: 048
     Dates: start: 202106, end: 202108
  4. BACTRIM [Suspect]
     Active Substance: SULFAMETHOXAZOLE\TRIMETHOPRIM
     Indication: Infection
     Dosage: 2 DF QD
     Route: 048
     Dates: start: 20210806, end: 20210827
  5. OLODATEROL HYDROCHLORIDE\TIOTROPIUM BROMIDE MONOHYDRATE [Concomitant]
     Active Substance: OLODATEROL HYDROCHLORIDE\TIOTROPIUM BROMIDE MONOHYDRATE
  6. DOLIPRANE [Concomitant]
     Active Substance: ACETAMINOPHEN
  7. SITAGLIPTIN [Concomitant]
     Active Substance: SITAGLIPTIN
  8. INNOHEP [Concomitant]
     Active Substance: TINZAPARIN SODIUM
  9. TRULICITY [Concomitant]
     Active Substance: DULAGLUTIDE
  10. TOUJEO [Concomitant]
     Active Substance: INSULIN GLARGINE
  11. PANTOPRAZOLE [Concomitant]
     Active Substance: PANTOPRAZOLE
  12. VENLAFAXINE [Concomitant]
     Active Substance: VENLAFAXINE HYDROCHLORIDE
  13. CHOLECALCIFEROL [Concomitant]
     Active Substance: CHOLECALCIFEROL

REACTIONS (1)
  - Hyperkalaemia [Recovered/Resolved]
